FAERS Safety Report 13007592 (Version 4)
Quarter: 2017Q2

REPORT INFORMATION
  Report Type: Report from Study
  Country: US (occurrence: US)
  Receive Date: 20161207
  Receipt Date: 20170427
  Transmission Date: 20170830
  Serious: Yes (Life-Threatening, Hospitalization, Other)
  Sender: FDA-Public Use
  Company Number: US-SHIRE-US201618200

PATIENT
  Age: 15 Year
  Sex: Female

DRUGS (15)
  1. CINRYZE [Suspect]
     Active Substance: HUMAN C1-ESTERASE INHIBITOR
     Dosage: 1500 UNITS, ONE DOSE
     Route: 042
     Dates: start: 20161002, end: 20161002
  2. FIRAZYR [Concomitant]
     Active Substance: ICATIBANT ACETATE
     Dosage: 30 MG, ONE DOSE
     Dates: start: 20160624, end: 20160624
  3. CINRYZE [Suspect]
     Active Substance: HUMAN C1-ESTERASE INHIBITOR
     Indication: HEREDITARY ANGIOEDEMA
     Dosage: 1500 UNITS  AS REQ^D
     Route: 050
     Dates: start: 20160516, end: 20160615
  4. FIRAZYR [Concomitant]
     Active Substance: ICATIBANT ACETATE
     Indication: HEREDITARY ANGIOEDEMA
     Dosage: 30 MG, AS REQ^D
     Route: 058
     Dates: start: 20141230, end: 20160615
  5. FIRAZYR [Concomitant]
     Active Substance: ICATIBANT ACETATE
     Dosage: 30 UNK, UNK
     Route: 058
     Dates: start: 20161021, end: 20161021
  6. HEPARIN LOCK FLUSH [Concomitant]
     Active Substance: HEPARIN SODIUM
     Indication: CATHETER MANAGEMENT
     Dosage: 300 IU, AS REQ^D
     Route: 050
     Dates: start: 20160331
  7. BLINDED 643 (LANADELUMAB) [Suspect]
     Active Substance: LANADELUMAB
     Indication: HEREDITARY ANGIOEDEMA
     Dosage: UNK UNK, UNKNOWN
     Route: 042
     Dates: start: 20160715
  8. BLINDED PLACEBO [Suspect]
     Active Substance: INVESTIGATIONAL PRODUCT
     Indication: HEREDITARY ANGIOEDEMA
     Dosage: UNK UNK, UNKNOWN
     Route: 042
     Dates: start: 20160715
  9. CINRYZE [Suspect]
     Active Substance: HUMAN C1-ESTERASE INHIBITOR
     Dosage: 1500 UNITS, OTHER X2
     Route: 042
     Dates: start: 20160620, end: 20160620
  10. FIRAZYR [Concomitant]
     Active Substance: ICATIBANT ACETATE
     Dosage: 30 MG, AS REQ^D
     Route: 058
     Dates: start: 20160712, end: 20160712
  11. EPINEPHRINE. [Concomitant]
     Active Substance: EPINEPHRINE
     Indication: HYPERSENSITIVITY
     Dosage: 0.3 MG, AS REQ^D
     Route: 030
     Dates: start: 20161006
  12. EMLA [Concomitant]
     Active Substance: LIDOCAINE\PRILOCAINE
     Indication: PRODUCT USED FOR UNKNOWN INDICATION
     Dosage: 30 G, AS REQ^D
     Route: 050
     Dates: start: 20151118
  13. SODIUM CHLORIDE. [Concomitant]
     Active Substance: SODIUM CHLORIDE
     Indication: CATHETER MANAGEMENT
     Dosage: 5 ML, AS REQ^D
     Route: 050
     Dates: start: 20150401
  14. VANCOMYCIN [Concomitant]
     Active Substance: VANCOMYCIN
     Indication: CATHETER MANAGEMENT
     Dosage: 3 ML, AS REQ^D
     Route: 050
     Dates: start: 20150603
  15. CINRYZE [Suspect]
     Active Substance: HUMAN C1-ESTERASE INHIBITOR
     Dosage: 1000 UNITS, OTHER (EVERY 3 DAYS)
     Route: 042
     Dates: start: 20150114

REACTIONS (1)
  - Catheter site infection [Recovered/Resolved]

NARRATIVE: CASE EVENT DATE: 20161129
